FAERS Safety Report 7169588-4 (Version None)
Quarter: 2010Q4

REPORT INFORMATION
  Report Type: 
  Country: None (occurrence: None)
  Receive Date: 20101217
  Receipt Date: 20101210
  Transmission Date: 20110411
  Serious: Yes (Hospitalization)
  Sender: FDA-Public Use
  Company Number: US-JNJFOC-20101004165

PATIENT
  Sex: Male
  Weight: 72.58 kg

DRUGS (2)
  1. DURAGESIC-100 [Suspect]
     Indication: PAIN
     Dosage: 75 UG/HR ONCE EVERY 2.5 DAYS
     Route: 062
  2. DURAGESIC-100 [Suspect]
     Dosage: 75 UG/HR ONCE EVERY 2.5 DAYS
     Route: 062

REACTIONS (6)
  - EYE INJURY [None]
  - FEELING ABNORMAL [None]
  - INAPPROPRIATE SCHEDULE OF DRUG ADMINISTRATION [None]
  - ROTATOR CUFF SYNDROME [None]
  - SKIN LACERATION [None]
  - WITHDRAWAL SYNDROME [None]
